FAERS Safety Report 6827883-X (Version None)
Quarter: 2010Q3

REPORT INFORMATION
  Report Type: 
  Country: None (occurrence: None)
  Receive Date: 20100709
  Receipt Date: 20100705
  Transmission Date: 20110219
  Serious: Yes (Other)
  Sender: FDA-Public Use
  Company Number: A0862097A

PATIENT
  Sex: Male

DRUGS (1)
  1. SUMATRIPTAN SUCCINATE (IMITREX) [Suspect]
     Indication: MIGRAINE
     Dosage: 100MG PER DAY
     Route: 065
     Dates: start: 20090805

REACTIONS (5)
  - BLOOD POTASSIUM INCREASED [None]
  - CARDIAC DISCOMFORT [None]
  - DISCOMFORT [None]
  - FATIGUE [None]
  - HEART RATE DECREASED [None]
